FAERS Safety Report 20338402 (Version 1)
Quarter: 2022Q1

REPORT INFORMATION
  Report Type: Spontaneous
  Country: US (occurrence: US)
  Receive Date: 20220115
  Receipt Date: 20220115
  Transmission Date: 20220423
  Serious: Yes (Death, Hospitalization, Other)
  Sender: FDA-Public Use
  Company Number: US-APOTEX-2022AP001552

PATIENT
  Age: 41 Year
  Sex: Male

DRUGS (14)
  1. MELOXICAM [Suspect]
     Active Substance: MELOXICAM
     Indication: Product used for unknown indication
     Dosage: UNK
     Route: 048
  2. MELOXICAM [Suspect]
     Active Substance: MELOXICAM
     Dosage: UNK
  3. GABAPENTIN [Suspect]
     Active Substance: GABAPENTIN
     Indication: Product used for unknown indication
     Dosage: UNK
     Route: 048
  4. GABAPENTIN [Suspect]
     Active Substance: GABAPENTIN
     Dosage: UNK
  5. INDOMETHACIN [Suspect]
     Active Substance: INDOMETHACIN
     Indication: Product used for unknown indication
     Dosage: UNK
     Route: 048
  6. INDOMETHACIN [Suspect]
     Active Substance: INDOMETHACIN
     Dosage: UNK
  7. ROFLUMILAST [Suspect]
     Active Substance: ROFLUMILAST
     Indication: Product used for unknown indication
     Dosage: UNK
     Route: 048
  8. ROFLUMILAST [Suspect]
     Active Substance: ROFLUMILAST
     Dosage: UNK
  9. ROPINIROLE [Suspect]
     Active Substance: ROPINIROLE
     Indication: Product used for unknown indication
     Dosage: UNK
     Route: 048
  10. ROPINIROLE [Suspect]
     Active Substance: ROPINIROLE
     Dosage: UNK
  11. RANOLAZINE [Suspect]
     Active Substance: RANOLAZINE
     Indication: Product used for unknown indication
     Dosage: UNK
     Route: 048
  12. RANOLAZINE [Suspect]
     Active Substance: RANOLAZINE
     Dosage: UNK
  13. BENZONATATE [Suspect]
     Active Substance: BENZONATATE
     Indication: Product used for unknown indication
     Dosage: UNK
     Route: 048
  14. BENZONATATE [Suspect]
     Active Substance: BENZONATATE
     Dosage: UNK

REACTIONS (1)
  - Drug abuse [Fatal]
